FAERS Safety Report 17540504 (Version 2)
Quarter: 2020Q1

REPORT INFORMATION
  Report Type: Spontaneous
  Country: PK (occurrence: PK)
  Receive Date: 20200313
  Receipt Date: 20200326
  Transmission Date: 20200409
  Serious: Yes (Other)
  Sender: FDA-Public Use
  Company Number: PK-PFIZER INC-2020108805

PATIENT
  Age: 33 Year
  Sex: Female
  Weight: 53 kg

DRUGS (4)
  1. LEFLUNOMIDE. [Suspect]
     Active Substance: LEFLUNOMIDE
     Dosage: 20 MG, 1+0
  2. METHOTREXATE SODIUM. [Suspect]
     Active Substance: METHOTREXATE SODIUM
     Dosage: 25 MG, WEEKLY
  3. PREDNISOLONE. [Suspect]
     Active Substance: PREDNISOLONE
     Dosage: UNK, 1+0
  4. CITANEW [Suspect]
     Active Substance: ESCITALOPRAM OXALATE
     Dosage: UNK

REACTIONS (8)
  - Arthralgia [Unknown]
  - Joint stiffness [Unknown]
  - Asthenia [Unknown]
  - Pyrexia [Unknown]
  - Latent tuberculosis [Unknown]
  - Mycobacterium tuberculosis complex test positive [Unknown]
  - Rheumatoid arthritis [Not Recovered/Not Resolved]
  - Joint swelling [Unknown]
